FAERS Safety Report 5945994-8 (Version None)
Quarter: 2008Q4

REPORT INFORMATION
  Report Type: 
  Country: None (occurrence: None)
  Receive Date: 20081110
  Receipt Date: 20081009
  Transmission Date: 20090506
  Serious: No
  Sender: FDA-Public Use
  Company Number: US-BAYER-200835383NA

PATIENT
  Age: 60 Year
  Sex: Female

DRUGS (3)
  1. AVELOX [Suspect]
     Indication: COUGH
     Dates: start: 20081006
  2. ASMANEX TWIST INHALER [Suspect]
     Indication: COUGH
  3. COUGH SYRUP [Concomitant]

REACTIONS (1)
  - BREAST PAIN [None]
